FAERS Safety Report 10168529 (Version 2)
Quarter: 2014Q2

REPORT INFORMATION
  Report Type: Spontaneous
  Country: JP (occurrence: JP)
  Receive Date: 20140513
  Receipt Date: 20140516
  Transmission Date: 20141212
  Serious: Yes (Death)
  Sender: FDA-Public Use
  Company Number: JP-009507513-1405JPN005295

PATIENT
  Age: 74 Year
  Sex: Female

DRUGS (2)
  1. DECADRON [Suspect]
     Indication: CUSHING^S SYNDROME
     Dosage: DAILY DOSE AS 1 MG
     Route: 048
  2. METYRAPONE [Concomitant]
     Indication: CUSHING^S SYNDROME
     Dosage: 1 MG/DAY
     Route: 048

REACTIONS (1)
  - Disseminated cryptococcosis [Fatal]
